FAERS Safety Report 6362765-1 (Version None)
Quarter: 2009Q3

REPORT INFORMATION
  Report Type: 
  Country: None (occurrence: None)
  Receive Date: 20090919
  Receipt Date: 20090609
  Transmission Date: 20100115
  Serious: No
  Sender: FDA-Public Use
  Company Number: US-ABBOTT-09P-163-0578840-00

PATIENT
  Sex: Female
  Weight: 66.738 kg

DRUGS (1)
  1. HUMIRA [Suspect]
     Indication: PSORIASIS
     Dates: start: 20090201

REACTIONS (2)
  - ALOPECIA [None]
  - INJECTION SITE NODULE [None]
